FAERS Safety Report 24323945 (Version 1)
Quarter: 2024Q3

REPORT INFORMATION
  Report Type: Spontaneous
  Country: US (occurrence: US)
  Receive Date: 20240916
  Receipt Date: 20240916
  Transmission Date: 20241017
  Serious: No
  Sender: ROCHE
  Company Number: US-ROCHE-10000079965

PATIENT
  Age: 81 Year
  Sex: Female
  Weight: 55.33 kg

DRUGS (2)
  1. ALECENSA [Suspect]
     Active Substance: ALECTINIB HYDROCHLORIDE
     Indication: Lung neoplasm malignant
     Dosage: LAST DOSE ON -MAY-2024
     Route: 048
     Dates: start: 202403, end: 202405
  2. BRIGATINIB [Concomitant]
     Active Substance: BRIGATINIB
     Indication: Lung neoplasm malignant
     Dosage: LAST DOSE ON 10-SEP-2024
     Route: 048
     Dates: start: 20240720

REACTIONS (5)
  - Anaemia [Recovered/Resolved]
  - Asthenia [Recovered/Resolved]
  - Osteoporosis [Unknown]
  - Cough [Unknown]
  - Off label use [Unknown]

NARRATIVE: CASE EVENT DATE: 20240501
